FAERS Safety Report 22052130 (Version 1)
Quarter: 2023Q1

REPORT INFORMATION
  Report Type: Spontaneous
  Country: US (occurrence: US)
  Receive Date: 20230302
  Receipt Date: 20230302
  Transmission Date: 20230417
  Serious: Yes (Death, Other)
  Sender: FDA-Public Use
  Company Number: US-BRISTOL-MYERS SQUIBB COMPANY-2023-030049

PATIENT
  Age: 65 Year
  Sex: Male
  Weight: 44.452 kg

DRUGS (1)
  1. REVLIMID [Suspect]
     Active Substance: LENALIDOMIDE
     Indication: Plasma cell leukaemia
     Dosage: DOSE : 10MG;     FREQ : DAILY FOR 21 DAYS AND 7 DAYS OFF
     Route: 048

REACTIONS (1)
  - Death [Fatal]
